FAERS Safety Report 8094542-8 (Version None)
Quarter: 2011Q4

REPORT INFORMATION
  Report Type: 
  Country: None (occurrence: None)
  Receive Date: 20111222
  Receipt Date: 20110923
  Transmission Date: 20120403
  Serious: Yes (Hospitalization)
  Sender: FDA-Public Use
  Company Number: UTC-010458

PATIENT
  Age: 69 Year
  Sex: Female
  Weight: 74.5 kg

DRUGS (6)
  1. REVATIO [Concomitant]
  2. DIURETICS (DIURETICS) [Concomitant]
  3. OXYGEN (OXYGEN) [Concomitant]
  4. TYVASO [Suspect]
     Indication: COR PULMONALE CHRONIC
     Dosage: 216 MCG  (54 MCG, 4 IN 1 D), INHALATION
     Route: 055
     Dates: start: 20110523
  5. ASPIRIN [Concomitant]
  6. TRACLEER [Concomitant]

REACTIONS (2)
  - URINARY TRACT INFECTION [None]
  - PNEUMONIA [None]
